FAERS Safety Report 17259905 (Version 1)
Quarter: 2020Q1

REPORT INFORMATION
  Report Type: Other
  Country: CA (occurrence: CA)
  Receive Date: 20200111
  Receipt Date: 20200111
  Transmission Date: 20200409
  Serious: Yes (Other)
  Sender: FDA-Public Use
  Company Number: CA-SUNRISE PHARMACEUTICAL, INC.-2078863

PATIENT
  Age: 19 Month
  Sex: Male

DRUGS (9)
  1. ALPHACALCIDOL [Concomitant]
     Active Substance: ALFACALCIDOL
  2. MULTIVITAMIN [Concomitant]
     Active Substance: VITAMINS
  3. CALCIUM CARBONATE WITH VITAMIN D (CHOLECALCIFEROL) [Concomitant]
     Active Substance: CALCIUM CARBONATE\CHOLECALCIFEROL
  4. SODIUM POLYSTYRENE SULFONATE. [Suspect]
     Active Substance: SODIUM POLYSTYRENE SULFONATE
     Indication: PRODUCT USED FOR UNKNOWN INDICATION
  5. CALCIUM CARBONATE. [Suspect]
     Active Substance: CALCIUM CARBONATE
  6. DARBEPOIETIN ALPHA [Concomitant]
  7. ELEMENTAL IRON [Concomitant]
  8. POLYETHYLENE GLYCOL [Concomitant]
     Active Substance: POLYETHYLENE GLYCOLS
  9. SEVELEMER HYDROCHLORIDE [Concomitant]

REACTIONS (2)
  - Drug interaction [Recovered/Resolved]
  - Metabolic alkalosis [Recovered/Resolved]
